FAERS Safety Report 9276680 (Version 2)
Quarter: 2013Q2

REPORT INFORMATION
  Report Type: Report from Study
  Country: US (occurrence: US)
  Receive Date: 20130507
  Receipt Date: 20130514
  Transmission Date: 20140414
  Serious: Yes (Hospitalization)
  Sender: FDA-Public Use
  Company Number: PHEH2013US009814

PATIENT
  Age: 72 Year
  Sex: Male

DRUGS (6)
  1. EXELON PATCH [Suspect]
     Indication: DEMENTIA ALZHEIMER^S TYPE
     Dosage: 4.6 MG, DAILY
     Route: 062
     Dates: start: 2011
  2. GLYBURIDE [Suspect]
     Dosage: 4 MG, BID
  3. GLYBURIDE [Suspect]
     Dosage: 1 MG, BID
  4. GLYBURIDE [Suspect]
     Dosage: 4 MG, UNK
     Dates: start: 20130423
  5. ARICEPT [Suspect]
     Dosage: UNK UKN, UNK
  6. NAMENDA [Concomitant]

REACTIONS (4)
  - Balance disorder [Recovering/Resolving]
  - Drug intolerance [Recovering/Resolving]
  - Irritability [Unknown]
  - Asthenia [Recovering/Resolving]
